FAERS Safety Report 21160735 (Version 1)
Quarter: 2022Q3

REPORT INFORMATION
  Report Type: Spontaneous
  Country: JP (occurrence: JP)
  Receive Date: 20220802
  Receipt Date: 20220802
  Transmission Date: 20221027
  Serious: Yes (Other)
  Sender: FDA-Public Use
  Company Number: JP-ALVOGEN-2022-ALVOGEN-120687

PATIENT
  Age: 77 Year
  Sex: Female

DRUGS (5)
  1. LIDOCAINE [Suspect]
     Active Substance: LIDOCAINE
     Indication: Maxillofacial operation
  2. EPINEPHRINE [Suspect]
     Active Substance: EPINEPHRINE
     Indication: Maxillofacial operation
  3. FENTANYL [Concomitant]
     Active Substance: FENTANYL
     Indication: Maxillofacial operation
  4. PROPOFOL [Concomitant]
     Active Substance: PROPOFOL
     Indication: Maxillofacial operation
  5. ROCURONIUM [Concomitant]
     Active Substance: ROCURONIUM BROMIDE
     Indication: Maxillofacial operation

REACTIONS (3)
  - Ventricular tachycardia [Recovered/Resolved]
  - Blood pressure systolic increased [Recovered/Resolved]
  - Heart rate increased [Recovered/Resolved]
